FAERS Safety Report 4462937-7 (Version None)
Quarter: 2004Q3

REPORT INFORMATION
  Report Type: 
  Country: None (occurrence: None)
  Receive Date: 20040927
  Receipt Date: 20040913
  Transmission Date: 20050211
  Serious: Yes (Death)
  Sender: FDA-Public Use
  Company Number: 209080

PATIENT
  Age: 54 Year
  Sex: Male
  Weight: 78 kg

DRUGS (2)
  1. MABTHERA (RITUXIMAB) CONC FOR SOLUTION FOR INFUSION [Suspect]
     Indication: CRYOGLOBULINAEMIA
     Dosage: 700 MG, 1/WEEK, INTRAVENOUS
     Route: 042
     Dates: start: 20040823, end: 20040906
  2. PREDNISONA (PREDNISONE) [Concomitant]

REACTIONS (1)
  - SUDDEN DEATH [None]
